FAERS Safety Report 5765093-8 (Version None)
Quarter: 2008Q2

REPORT INFORMATION
  Report Type: 
  Country: None (occurrence: None)
  Receive Date: 20080605
  Receipt Date: 20080521
  Transmission Date: 20081010
  Serious: Yes (Death, Hospitalization)
  Sender: FDA-Public Use
  Company Number: 2008AL005682

PATIENT
  Age: 55 Year
  Sex: Male
  Weight: 56.6996 kg

DRUGS (5)
  1. DIGOXIN [Suspect]
     Indication: CARDIAC DISORDER
  2. SPIRONOLACTONE [Concomitant]
  3. COZAAR [Concomitant]
  4. ZOCOR [Concomitant]
  5. BABY ASAPRIN [Concomitant]

REACTIONS (9)
  - BACK PAIN [None]
  - CARDIOMYOPATHY [None]
  - DYSPNOEA [None]
  - FATIGUE [None]
  - INSOMNIA [None]
  - MALAISE [None]
  - PULMONARY OEDEMA [None]
  - PULMONARY THROMBOSIS [None]
  - WEIGHT DECREASED [None]
